FAERS Safety Report 5771714-6 (Version None)
Quarter: 2008Q2

REPORT INFORMATION
  Report Type: 
  Country: None (occurrence: None)
  Receive Date: 20080613
  Receipt Date: 20080530
  Transmission Date: 20081010
  Serious: Yes (Hospitalization)
  Sender: FDA-Public Use
  Company Number: JP-SANOFI-SYNTHELABO-A01200806364

PATIENT
  Sex: Female
  Weight: 44 kg

DRUGS (27)
  1. AZELASTINE HCL [Concomitant]
     Indication: RHINORRHOEA
     Route: 048
     Dates: start: 20080521
  2. CYTOTEC [Concomitant]
     Indication: GASTRITIS PROPHYLAXIS
     Route: 048
     Dates: start: 20080521
  3. LOCOID [Concomitant]
     Indication: PALMAR-PLANTAR ERYTHRODYSAESTHESIA SYNDROME
     Dosage: UNK
     Dates: start: 20080423
  4. POSTERISAN [Concomitant]
     Indication: HAEMORRHOIDS
     Dosage: UNK
     Route: 054
     Dates: start: 20080318
  5. LAC-B [Concomitant]
     Indication: HAEMORRHOIDS
     Dosage: UNK
     Route: 048
     Dates: start: 20080311, end: 20080408
  6. SELBEX [Concomitant]
     Indication: GASTRITIS PROPHYLAXIS
     Route: 048
     Dates: start: 20080309
  7. LOXONIN [Concomitant]
     Dosage: UNK
     Route: 048
     Dates: start: 20080309
  8. PRIMPERAN TAB [Concomitant]
     Indication: NAUSEA
     Route: 048
     Dates: start: 20080303
  9. B FLUID [Concomitant]
     Dosage: UNK
     Route: 042
     Dates: start: 20080302, end: 20080309
  10. VEEN-D [Concomitant]
     Dosage: UNK
     Route: 042
     Dates: start: 20080302, end: 20080309
  11. SOLDEM 3A [Concomitant]
     Dosage: UNK
     Route: 042
     Dates: start: 20080229, end: 20080229
  12. LOPERAMIDE HCL [Concomitant]
     Indication: DIARRHOEA
     Route: 048
     Dates: start: 20080227
  13. MIYA BM [Concomitant]
     Indication: DIARRHOEA
     Dosage: UNK
     Route: 048
     Dates: start: 20080227, end: 20080310
  14. MIYA BM [Concomitant]
     Route: 048
     Dates: start: 20080409
  15. AZUNOL [Concomitant]
     Dosage: UNK
     Dates: start: 20080227, end: 20080317
  16. MOHRUS TAPE [Concomitant]
     Dosage: UNK
     Route: 048
  17. POLARAMINE [Concomitant]
     Indication: PREMEDICATION
     Route: 042
     Dates: start: 20080225, end: 20080521
  18. DECADRON [Concomitant]
     Indication: PREMEDICATION
     Route: 042
     Dates: start: 20080225, end: 20080521
  19. AZD2171 [Concomitant]
     Dosage: UNK
     Route: 048
     Dates: start: 20080225
  20. ISOVORIN [Concomitant]
     Route: 041
     Dates: start: 20080521, end: 20080521
  21. ELPLAT [Suspect]
     Indication: COLON CANCER
     Route: 041
     Dates: start: 20080521, end: 20080521
  22. NASEA [Concomitant]
     Indication: PREMEDICATION
     Route: 042
     Dates: start: 20080225, end: 20080521
  23. NASEA [Concomitant]
     Indication: NAUSEA
     Route: 042
     Dates: start: 20080225, end: 20080521
  24. NASEA [Concomitant]
     Route: 048
     Dates: start: 20080228
  25. NASEA [Concomitant]
     Route: 048
     Dates: start: 20080228
  26. FLUOROURACIL [Suspect]
     Dosage: 550 MG/BODY=400 MG/M2 IN BOLUS THEN 3450 MG/BODY=2400 MG/M2 AS INFUSION D1-2
     Route: 040
     Dates: start: 20080521, end: 20080521
  27. FLUOROURACIL [Suspect]
     Route: 041
     Dates: start: 20080521, end: 20080522

REACTIONS (2)
  - MALAISE [None]
  - MALNUTRITION [None]
